FAERS Safety Report 5788571-4 (Version None)
Quarter: 2008Q2

REPORT INFORMATION
  Report Type: 
  Country: None (occurrence: None)
  Receive Date: 20080625
  Receipt Date: 20080625
  Transmission Date: 20081010
  Serious: Yes (Life-Threatening, Hospitalization)
  Sender: FDA-Public Use
  Company Number: None

PATIENT
  Sex: Female
  Weight: 92.0802 kg

DRUGS (4)
  1. PAROXETINE HCL [Suspect]
     Indication: DEPRESSION
     Dosage: 20MG DAILY PO
     Route: 048
     Dates: start: 20080506, end: 20080522
  2. LISINOPRIL AND HYDROCHLOROTHIAZIDE [Concomitant]
  3. FIORICET [Concomitant]
  4. XANAX [Concomitant]

REACTIONS (2)
  - MULTIPLE DRUG OVERDOSE [None]
  - SUICIDAL IDEATION [None]
